FAERS Safety Report 4461327-0 (Version None)
Quarter: 2004Q3

REPORT INFORMATION
  Report Type: 
  Country: None (occurrence: None)
  Receive Date: 20040916
  Receipt Date: 20040903
  Transmission Date: 20050211
  Serious: Yes (Other)
  Sender: FDA-Public Use
  Company Number: FRWYE017606SEP04

PATIENT
  Age: 5 Year
  Sex: Male

DRUGS (1)
  1. REFACTO [Suspect]
     Indication: FACTOR VIII DEFICIENCY
     Dosage: PROPHYLAXIS REGIMEN; INTRAVENOUS
     Route: 042
     Dates: end: 20040101

REACTIONS (4)
  - COAGULATION FACTOR VIII LEVEL DECREASED [None]
  - DRUG HALF-LIFE REDUCED [None]
  - DRUG INEFFECTIVE [None]
  - HAEMORRHAGE [None]
